FAERS Safety Report 10890883 (Version 1)
Quarter: 2015Q1

REPORT INFORMATION
  Report Type: Other
  Country: DE (occurrence: DE)
  Receive Date: 20150305
  Receipt Date: 20150305
  Transmission Date: 20150721
  Serious: Yes (Other)
  Sender: FDA-Public Use
  Company Number: DE-SUN PHARMACEUTICAL INDUSTRIES LTD-2015SUN00634

PATIENT

DRUGS (1)
  1. OXALIPLATIN SUN 5 MG/ML POW FOR SOL FOR INFUSION [Suspect]
     Active Substance: OXALIPLATIN
     Indication: PRODUCT USED FOR UNKNOWN INDICATION
     Dosage: 117 MG, UNK
     Route: 042
     Dates: start: 20141107

REACTIONS (3)
  - Hypertension [Unknown]
  - Respiratory distress [Unknown]
  - Flushing [Unknown]

NARRATIVE: CASE EVENT DATE: 20150129
